FAERS Safety Report 10672716 (Version 1)
Quarter: 2014Q4

REPORT INFORMATION
  Report Type: Report from Study
  Country: TW (occurrence: TW)
  Receive Date: 20141223
  Receipt Date: 20141223
  Transmission Date: 20150529
  Serious: Yes (Other)
  Sender: FDA-Public Use
  Company Number: TW-MERCK-1412TWN010343

PATIENT
  Age: 73 Year
  Sex: Female
  Weight: 54.9 kg

DRUGS (1)
  1. ERTAPENEM SODIUM [Suspect]
     Active Substance: ERTAPENEM SODIUM
     Indication: CELLULITIS
     Dosage: 500 MG, QD, ACCUMULATIVE DOSE: 3500
     Route: 042

REACTIONS (2)
  - Neurotoxicity [Recovered/Resolved]
  - Adverse event [Recovered/Resolved]
